FAERS Safety Report 24136008 (Version 1)
Quarter: 2024Q3

REPORT INFORMATION
  Report Type: Spontaneous
  Country: IT (occurrence: IT)
  Receive Date: 20240725
  Receipt Date: 20240725
  Transmission Date: 20241016
  Serious: Yes (Other)
  Sender: JOHNSON AND JOHNSON
  Company Number: IT-JNJFOC-20240763198

PATIENT
  Age: 21 Year
  Sex: Male

DRUGS (2)
  1. RISPERDAL [Suspect]
     Active Substance: RISPERIDONE
     Indication: Product used for unknown indication
     Route: 048
  2. DEPAKENE [Suspect]
     Active Substance: VALPROIC ACID
     Indication: Product used for unknown indication
     Dosage: DOSE: 3 SACHETS
     Route: 048

REACTIONS (2)
  - Self-destructive behaviour [Unknown]
  - Intentional product misuse [Unknown]
